FAERS Safety Report 19692923 (Version 1)
Quarter: 2021Q3

REPORT INFORMATION
  Report Type: Report from Study
  Country: US (occurrence: US)
  Receive Date: 20210812
  Receipt Date: 20210812
  Transmission Date: 20211014
  Serious: Yes (Death, Hospitalization, Other)
  Sender: FDA-Public Use
  Company Number: US-TAKEDA-US201610182

PATIENT
  Age: 14 Year
  Sex: Male

DRUGS (2)
  1. IDURSULFASE [Suspect]
     Active Substance: IDURSULFASE
     Dosage: 24 UNK, 1/WEEK
     Route: 041
     Dates: start: 20160524
  2. IDURSULFASE [Suspect]
     Active Substance: IDURSULFASE
     Indication: MUCOPOLYSACCHARIDOSIS II
     Dosage: 5 VIALS WEEKLY
     Route: 042
     Dates: start: 20061110, end: 2015

REACTIONS (2)
  - Pneumonia [Unknown]
  - Tracheostomy malfunction [Fatal]

NARRATIVE: CASE EVENT DATE: 201607
